FAERS Safety Report 9321195 (Version 1)
Quarter: 2013Q2

REPORT INFORMATION
  Report Type: Spontaneous
  Country: US (occurrence: US)
  Receive Date: 20130531
  Receipt Date: 20130531
  Transmission Date: 20140414
  Serious: No
  Sender: FDA-Public Use
  Company Number: US-MYLANLABS-2013S1008472

PATIENT
  Age: 65 Year
  Sex: Female

DRUGS (2)
  1. DOXYCYCLINE HYCLATE DELAYED-RELEASE TABLETS USP [Suspect]
     Indication: LYME DISEASE
     Route: 048
     Dates: start: 201301
  2. DOXYCYCLINE HYCLATE DELAYED-RELEASE TABLETS USP [Suspect]
     Indication: OFF LABEL USE
     Route: 048
     Dates: start: 201301

REACTIONS (2)
  - Drug ineffective for unapproved indication [Not Recovered/Not Resolved]
  - Lyme disease [Not Recovered/Not Resolved]
